FAERS Safety Report 10027560 (Version 2)
Quarter: 2014Q1

REPORT INFORMATION
  Report Type: Report from Study
  Country: GB (occurrence: GB)
  Receive Date: 20140321
  Receipt Date: 20140321
  Transmission Date: 20141002
  Serious: Yes (Death, Other)
  Sender: FDA-Public Use
  Company Number: GB-ROCHE-1255955

PATIENT
  Age: 72 Year
  Sex: Male

DRUGS (5)
  1. RANIBIZUMAB [Suspect]
     Indication: AGE-RELATED MACULAR DEGENERATION
     Route: 050
     Dates: start: 20101008
  2. RANIBIZUMAB [Suspect]
     Route: 050
     Dates: start: 20120209
  3. OMEPRAZOLE [Concomitant]
     Route: 065
     Dates: start: 20040410
  4. ATENOLOL [Concomitant]
     Route: 065
     Dates: start: 20100518
  5. PRAVASTATIN [Concomitant]
     Route: 065
     Dates: start: 20040505

REACTIONS (2)
  - Death [Fatal]
  - Renal cell carcinoma [Unknown]
